FAERS Safety Report 4865665-9 (Version None)
Quarter: 2005Q4

REPORT INFORMATION
  Report Type: 
  Country: None (occurrence: None)
  Receive Date: 20051220
  Receipt Date: 20051207
  Transmission Date: 20060501
  Serious: Yes (Hospitalization)
  Sender: FDA-Public Use
  Company Number: US016260

PATIENT
  Age: 83 Year
  Sex: Male
  Weight: 71.2147 kg

DRUGS (6)
  1. GABITRIL [Suspect]
     Indication: NECK PAIN
     Dosage: 2 MG BID ORAL
     Route: 048
     Dates: start: 20050815, end: 20050817
  2. GABITRIL [Suspect]
     Indication: NECK PAIN
     Dosage: 2 MG QID ORAL
     Route: 048
     Dates: start: 20050818, end: 20050901
  3. GABITRIL [Suspect]
     Indication: NECK PAIN
     Dosage: 16 MG QD ORAL
     Route: 048
     Dates: start: 20050901, end: 20051021
  4. ACTOS [Concomitant]
  5. ZETIA [Concomitant]
  6. LEVOXYL [Concomitant]

REACTIONS (11)
  - ABDOMINAL PAIN [None]
  - CONVULSION [None]
  - DIARRHOEA [None]
  - DISTURBANCE IN ATTENTION [None]
  - DIZZINESS [None]
  - IRRITABILITY [None]
  - LOSS OF CONSCIOUSNESS [None]
  - MYALGIA [None]
  - NECK PAIN [None]
  - PAIN IN EXTREMITY [None]
  - SHOULDER PAIN [None]
